FAERS Safety Report 9281520 (Version 2)
Quarter: 2013Q3

REPORT INFORMATION
  Report Type: Report from Study
  Country: US (occurrence: US)
  Receive Date: 20130509
  Receipt Date: 20130708
  Transmission Date: 20140515
  Serious: Yes (Other)
  Sender: FDA-Public Use
  Company Number: US-MILLENNIUM PHARMACEUTICALS, INC.-2013-03341

PATIENT
  Sex: 0

DRUGS (5)
  1. VELCADE [Suspect]
     Indication: PLASMA CELL MYELOMA
  2. CYCLOSPORINE [Suspect]
     Indication: PLASMA CELL MYELOMA
  3. FLUDARABINE [Suspect]
     Indication: PLASMA CELL MYELOMA
  4. MYCOPHENOLATE MOFETIL [Suspect]
     Indication: PLASMA CELL MYELOMA
  5. MELPHALAN [Suspect]
     Indication: PLASMA CELL MYELOMA

REACTIONS (1)
  - Tinnitus [Unknown]
